FAERS Safety Report 15789680 (Version 1)
Quarter: 2019Q1

REPORT INFORMATION
  Report Type: Spontaneous
  Country: US (occurrence: US)
  Receive Date: 20190103
  Receipt Date: 20190103
  Transmission Date: 20190417
  Serious: Yes (Life-Threatening, Hospitalization, Disabling)
  Sender: FDA-Public Use
  Company Number: None

PATIENT
  Sex: Female
  Weight: 67.5 kg

DRUGS (8)
  1. KADIAN [Concomitant]
     Active Substance: MORPHINE SULFATE
  2. OXYCODONE [Concomitant]
     Active Substance: OXYCODONE
  3. MULTIVITAMINS [Concomitant]
     Active Substance: VITAMINS
  4. EMBEDA [Suspect]
     Active Substance: MORPHINE SULFATE\NALTREXONE HYDROCHLORIDE
     Indication: PAIN
     Dosage: ?          QUANTITY:1 CAPSULE(S);?
     Route: 048
  5. B-1 [Concomitant]
  6. ASPIRIN. [Concomitant]
     Active Substance: ASPIRIN
  7. VITAMINS B-12 [Concomitant]
  8. VITAMIN D3 [Concomitant]
     Active Substance: CHOLECALCIFEROL

REACTIONS (5)
  - Chest pain [None]
  - Withdrawal syndrome [None]
  - Heart rate increased [None]
  - Nausea [None]
  - Hypertension [None]
